FAERS Safety Report 11015949 (Version 2)
Quarter: 2015Q2

REPORT INFORMATION
  Report Type: Spontaneous
  Country: US (occurrence: US)
  Receive Date: 20150412
  Receipt Date: 20150525
  Transmission Date: 20150821
  Serious: No
  Sender: FDA-Public Use
  Company Number: US-JNJFOC-20120510319

PATIENT
  Age: 44 Year
  Sex: Female
  Weight: 77.11 kg

DRUGS (3)
  1. SIMPONI [Suspect]
     Active Substance: GOLIMUMAB
     Indication: SPONDYLITIS
     Route: 058
     Dates: start: 201110
  2. METHOTREXATE [Concomitant]
     Active Substance: METHOTREXATE
     Dosage: 8-10 MG
     Route: 048
     Dates: start: 201112
  3. FOLIC ACID. [Concomitant]
     Active Substance: FOLIC ACID
     Route: 065
     Dates: start: 201112

REACTIONS (3)
  - Device malfunction [Unknown]
  - Drug dose omission [Not Recovered/Not Resolved]
  - Drug ineffective [Recovering/Resolving]

NARRATIVE: CASE EVENT DATE: 201112
